FAERS Safety Report 15731586 (Version 1)
Quarter: 2018Q4

REPORT INFORMATION
  Report Type: Spontaneous
  Country: GB (occurrence: GB)
  Receive Date: 20181217
  Receipt Date: 20181217
  Transmission Date: 20190205
  Serious: Yes (Death, Hospitalization)
  Sender: FDA-Public Use
  Company Number: GB-PFM-GBPFL-S-20080011

PATIENT

DRUGS (2)
  1. CISPLATIN. [Suspect]
     Active Substance: CISPLATIN
     Indication: NON-SMALL CELL LUNG CANCER
     Dosage: 80 MG, CYCLICAL
     Route: 042
     Dates: start: 20070830
  2. NAVELBINE [Suspect]
     Active Substance: VINORELBINE TARTRATE
     Indication: NON-SMALL CELL LUNG CANCER
     Dosage: 50 MG, CYCLICAL
     Route: 042
     Dates: start: 20070830

REACTIONS (2)
  - Neutropenic sepsis [Recovering/Resolving]
  - Cardiac arrest [Fatal]

NARRATIVE: CASE EVENT DATE: 20070910
